FAERS Safety Report 9885631 (Version 3)
Quarter: 2014Q1

REPORT INFORMATION
  Report Type: Report from Study
  Country: NL (occurrence: NL)
  Receive Date: 20140210
  Receipt Date: 20140312
  Transmission Date: 20141002
  Serious: Yes (Hospitalization)
  Sender: FDA-Public Use
  Company Number: NL-B.I. PHARMACEUTICALS,INC./RIDGEFIELD-2014-BI-00899BI

PATIENT
  Age: 71 Year
  Sex: Male
  Weight: 78 kg

DRUGS (6)
  1. BIBW 2992 [Suspect]
     Indication: SQUAMOUS CELL CARCINOMA OF LUNG
     Dosage: 40 MG
     Route: 048
     Dates: start: 20131213, end: 20140128
  2. CLINDAMYCINE LOTION [Suspect]
     Indication: STOMATITIS
     Dosage: DAILY DOSE: PRN
     Route: 048
     Dates: start: 20140108
  3. MINOCYCLINE [Concomitant]
     Indication: ACNE
     Dosage: 100 MG
     Route: 048
     Dates: start: 20131222
  4. ROSEX CREME [Concomitant]
     Indication: ACNE
     Dosage: ROUTE: DERMAL; DAILY DOSE: PRN
     Route: 065
     Dates: start: 20131222
  5. FLUIMUCIL [Concomitant]
     Indication: NON-SMALL CELL LUNG CANCER
     Dosage: 600 MG
     Route: 048
     Dates: start: 20140108
  6. HYDROCORT CREME [Concomitant]
     Indication: ACNE
     Dosage: DAILY DOSE: PRN ROUTE: DERMAL
     Route: 065
     Dates: start: 20140108

REACTIONS (6)
  - Blood calcium increased [Recovered/Resolved]
  - Dehydration [Recovered/Resolved]
  - Dehydration [Recovered/Resolved]
  - Oral discomfort [Unknown]
  - Renal impairment [Recovered/Resolved]
  - Pyrexia [Recovered/Resolved]
